FAERS Safety Report 14922592 (Version 2)
Quarter: 2018Q4

REPORT INFORMATION
  Report Type: Spontaneous
  Country: US (occurrence: US)
  Receive Date: 20180522
  Receipt Date: 20181013
  Transmission Date: 20190204
  Serious: No
  Sender: FDA-Public Use
  Company Number: US-SHIRE-US201819490

PATIENT
  Sex: Female

DRUGS (6)
  1. CALCIUM [Concomitant]
     Active Substance: CALCIUM
     Indication: HYPOCALCAEMIA
  2. CALCITROL [Concomitant]
     Active Substance: CALCITRIOL
     Indication: HYPOCALCAEMIA
  3. VITAMIN B [Concomitant]
     Active Substance: VITAMIN B
     Indication: HYPOVITAMINOSIS
  4. NATPARA (PARATHYROID HORMONE) [Suspect]
     Active Substance: PARATHYROID HORMONE
     Indication: HYPOCALCAEMIA
     Dosage: 100 ?G, 1X/DAY:QD
     Route: 058
  5. ARMOUR THYROID [Concomitant]
     Active Substance: THYROID, PORCINE
     Indication: HYPOTHYROIDISM
  6. HCTZ [Concomitant]
     Active Substance: HYDROCHLOROTHIAZIDE
     Indication: HYPERCALCIURIA

REACTIONS (1)
  - Calcinosis [Not Recovered/Not Resolved]
